FAERS Safety Report 6137645-7 (Version None)
Quarter: 2009Q1

REPORT INFORMATION
  Report Type: 
  Country: None (occurrence: None)
  Receive Date: 20090327
  Receipt Date: 20090317
  Transmission Date: 20090719
  Serious: Yes (Other)
  Sender: FDA-Public Use
  Company Number: CHPA2009US07244

PATIENT

DRUGS (1)
  1. VOLTAREN [Suspect]
     Dosage: TOPICAL
     Route: 061

REACTIONS (1)
  - DIALYSIS [None]
